FAERS Safety Report 8389286-9 (Version None)
Quarter: 2012Q2

REPORT INFORMATION
  Report Type: 
  Country: None (occurrence: None)
  Receive Date: 20120528
  Receipt Date: 20120523
  Transmission Date: 20120825
  Serious: Yes (Other)
  Sender: FDA-Public Use
  Company Number: ES-AMGEN-ESPSP2012024309

PATIENT
  Age: 70 Year
  Sex: Female
  Weight: 110 kg

DRUGS (6)
  1. DIAMICRON [Concomitant]
     Indication: DIABETES MELLITUS
     Dosage: 80 UNK, UNK
     Route: 048
     Dates: start: 20080826
  2. ARANESP [Suspect]
     Dosage: 150 MUG, QMO
  3. ENALAPRIL MALEATE [Concomitant]
     Indication: HYPERTENSION
     Dosage: 5 UNK, QD
     Route: 048
     Dates: start: 20080826
  4. ARANESP [Suspect]
     Indication: PRODUCT USED FOR UNKNOWN INDICATION
     Dosage: 150 MUG, QMO
     Route: 058
     Dates: start: 20120213, end: 20120417
  5. METFORMIN HCL [Concomitant]
     Indication: DIABETES MELLITUS
     Dosage: 850 UNK, UNK
     Route: 048
     Dates: start: 20080826
  6. FERBISOL [Concomitant]
     Indication: ANAEMIA
     Dosage: 100 MG, QD
     Route: 048
     Dates: start: 20090427

REACTIONS (3)
  - GENERALISED OEDEMA [None]
  - PRURITUS [None]
  - ERYTHEMA [None]
